FAERS Safety Report 11716866 (Version 1)
Quarter: 2015Q4

REPORT INFORMATION
  Report Type: Spontaneous
  Country: JP (occurrence: JP)
  Receive Date: 20151109
  Receipt Date: 20151109
  Transmission Date: 20160304
  Serious: Yes (Death, Hospitalization)
  Sender: FDA-Public Use
  Company Number: JP-BAYER-2015-455807

PATIENT
  Age: 75 Year
  Sex: Male
  Weight: 57.4 kg

DRUGS (1)
  1. BAYASPIRIN [Suspect]
     Active Substance: ASPIRIN
     Dosage: UNK
     Route: 048

REACTIONS (6)
  - Cardiac amyloidosis [Fatal]
  - Rectal cancer [None]
  - Haematochezia [None]
  - Enterocolitis [None]
  - Cardiac failure congestive [Fatal]
  - Metastases to lung [None]

NARRATIVE: CASE EVENT DATE: 20120318
